FAERS Safety Report 6259856-2 (Version None)
Quarter: 2009Q3

REPORT INFORMATION
  Report Type: 
  Country: None (occurrence: None)
  Receive Date: 20090708
  Receipt Date: 20090630
  Transmission Date: 20100115
  Serious: Yes (Hospitalization)
  Sender: FDA-Public Use
  Company Number: GB-ROCHE-639204

PATIENT
  Sex: Female
  Weight: 62.1 kg

DRUGS (8)
  1. CAPECITABINE [Suspect]
     Indication: BREAST CANCER
     Dosage: ON DAYS 1-14 EVERY 3 WEEKS
     Route: 048
     Dates: start: 20081027, end: 20090519
  2. SUNITINIB [Suspect]
     Indication: BREAST CANCER
     Route: 048
     Dates: start: 20071027, end: 20090519
  3. TRAMADOL HCL [Suspect]
     Indication: PAIN
     Route: 065
     Dates: start: 20090308
  4. TEMAZEPAM [Concomitant]
     Indication: INSOMNIA
     Dates: start: 20090505
  5. ZOLEDRONIC ACID [Concomitant]
     Dates: start: 20071008
  6. CYCLIZINE [Concomitant]
     Indication: NAUSEA
     Dates: start: 20081110
  7. METOCLOPRAMIDE [Concomitant]
     Indication: NAUSEA
     Dates: start: 20081110
  8. CODEINE [Concomitant]
     Indication: DIARRHOEA
     Dates: start: 20081027

REACTIONS (5)
  - BLOOD PRESSURE INCREASED [None]
  - CONVULSION [None]
  - GRAND MAL CONVULSION [None]
  - PARAESTHESIA [None]
  - SUBDURAL HAEMATOMA [None]
